FAERS Safety Report 23785901 (Version 1)
Quarter: 2024Q2

REPORT INFORMATION
  Report Type: Spontaneous
  Country: CN (occurrence: CN)
  Receive Date: 20240426
  Receipt Date: 20240426
  Transmission Date: 20240715
  Serious: Yes (Life-Threatening, Hospitalization)
  Sender: FDA-Public Use
  Company Number: CN-STRIDES ARCOLAB LIMITED-2024SP004826

PATIENT
  Age: 14 Year
  Sex: Female

DRUGS (3)
  1. ETOPOSIDE [Suspect]
     Active Substance: ETOPOSIDE
     Indication: CNS germinoma
     Dosage: UNK, CYCLICAL
     Route: 065
     Dates: start: 202101
  2. ETOPOSIDE [Suspect]
     Active Substance: ETOPOSIDE
     Indication: Haemophagocytic lymphohistiocytosis
     Dosage: UNK
     Route: 065
     Dates: start: 202105
  3. CARBOPLATIN [Suspect]
     Active Substance: CARBOPLATIN
     Indication: CNS germinoma
     Dosage: UNK, CYCLICAL
     Route: 065
     Dates: start: 202101, end: 20210521

REACTIONS (14)
  - Liver injury [Recovered/Resolved]
  - Hypokalaemia [Recovered/Resolved]
  - Blood sodium increased [Recovered/Resolved]
  - Blood magnesium decreased [Recovered/Resolved]
  - Pancytopenia [Recovered/Resolved]
  - Haemophagocytic lymphohistiocytosis [Recovered/Resolved]
  - Myelodysplastic syndrome [Recovered/Resolved]
  - Keratolysis exfoliativa acquired [Recovered/Resolved]
  - Coagulopathy [Recovered/Resolved]
  - Haemorrhage subcutaneous [Recovered/Resolved]
  - Myelosuppression [Recovered/Resolved]
  - Immunosuppression [Recovered/Resolved]
  - Intracranial infection [Recovered/Resolved]
  - Off label use [Unknown]

NARRATIVE: CASE EVENT DATE: 20210101
